FAERS Safety Report 13855806 (Version 1)
Quarter: 2017Q3

REPORT INFORMATION
  Report Type: Spontaneous
  Country: US (occurrence: US)
  Receive Date: 20170810
  Receipt Date: 20170810
  Transmission Date: 20171127
  Serious: No
  Sender: FDA-Public Use
  Company Number: GXBR2016US003526

PATIENT
  Sex: Female

DRUGS (1)
  1. VITAMIN A AND D [Suspect]
     Active Substance: LANOLIN\PETROLATUM
     Indication: WOUND
     Route: 061

REACTIONS (1)
  - Application site pruritus [Not Recovered/Not Resolved]
